FAERS Safety Report 11975296 (Version 9)
Quarter: 2019Q3

REPORT INFORMATION
  Report Type: Spontaneous
  Country: US (occurrence: US)
  Receive Date: 20160128
  Receipt Date: 20190709
  Transmission Date: 20191004
  Serious: Yes (Hospitalization, Other)
  Sender: FDA-Public Use
  Company Number: US-DSJP-DSU-2015-133631

PATIENT

DRUGS (5)
  1. BENICAR [Suspect]
     Active Substance: OLMESARTAN MEDOXOMIL
     Dosage: 10 MG, QD
     Dates: end: 201305
  2. BENICAR [Suspect]
     Active Substance: OLMESARTAN MEDOXOMIL
     Indication: HYPERTENSION
     Dosage: 5 MG HALF TABLET, QD
     Dates: start: 200809
  3. BENICAR [Suspect]
     Active Substance: OLMESARTAN MEDOXOMIL
     Dosage: UNK
     Dates: start: 201408
  4. BENICAR [Suspect]
     Active Substance: OLMESARTAN MEDOXOMIL
     Dosage: 5 MG TWO TABLET, QD
     Route: 048
     Dates: start: 200809, end: 20140715
  5. INSULIN [Concomitant]
     Active Substance: INSULIN NOS
     Indication: PRODUCT USED FOR UNKNOWN INDICATION
     Dosage: UNK

REACTIONS (13)
  - Kidney transplant rejection [Recovering/Resolving]
  - Gastroenteritis viral [Unknown]
  - Acute kidney injury [Not Recovered/Not Resolved]
  - Hepatic steatosis [Unknown]
  - Gastrooesophageal reflux disease [Not Recovered/Not Resolved]
  - Pancreatitis acute [Not Recovered/Not Resolved]
  - Product administration error [Unknown]
  - End stage renal disease [Unknown]
  - Renal cyst [Unknown]
  - Cholecystitis [Recovered/Resolved]
  - Helicobacter infection [Unknown]
  - Sprue-like enteropathy [Recovered/Resolved]
  - Haemorrhoids [Recovered/Resolved]

NARRATIVE: CASE EVENT DATE: 200809
